FAERS Safety Report 4766929-X (Version None)
Quarter: 2005Q3

REPORT INFORMATION
  Report Type: 
  Country: None (occurrence: None)
  Receive Date: 20050913
  Receipt Date: 20050909
  Transmission Date: 20060218
  Serious: Yes (Life-Threatening, Hospitalization)
  Sender: FDA-Public Use
  Company Number: BR-BOEHRINGER INGELHEIM PHARMACEUTICALS, INC.-2005-BP-15910BR

PATIENT
  Age: 44 Year
  Sex: Male

DRUGS (7)
  1. COMBIVENT [Suspect]
     Indication: CHRONIC OBSTRUCTIVE PULMONARY DISEASE
     Route: 055
     Dates: start: 20040101, end: 20050817
  2. COMBIVENT [Suspect]
     Indication: EMPHYSEMA
  3. COMBIVENT [Suspect]
     Indication: ASTHMA
  4. CORTICORTEM [Concomitant]
     Indication: CHRONIC OBSTRUCTIVE PULMONARY DISEASE
  5. CORTICORTEM [Concomitant]
     Indication: EMPHYSEMA
  6. CORTICORTEM [Concomitant]
     Indication: ASTHMA
  7. DIGESTAL [Concomitant]
     Indication: OESOPHAGITIS

REACTIONS (4)
  - ASTHMA [None]
  - PNEUMONIA [None]
  - RESPIRATORY ARREST [None]
  - THERAPEUTIC RESPONSE DECREASED [None]
